FAERS Safety Report 14426986 (Version 1)
Quarter: 2018Q1

REPORT INFORMATION
  Report Type: Spontaneous
  Country: US (occurrence: US)
  Receive Date: 20180123
  Receipt Date: 20180123
  Transmission Date: 20180509
  Serious: No
  Sender: FDA-Public Use
  Company Number: US-ST. RENATUS-2017STR00050

PATIENT
  Age: 44 Year
  Sex: Male
  Weight: 90.7 kg

DRUGS (2)
  1. KOVANAZE [Suspect]
     Active Substance: OXYMETAZOLINE HYDROCHLORIDE\TETRACAINE HYDROCHLORIDE
     Indication: ANAESTHESIA
     Dosage: UNK, TWICE
     Route: 045
     Dates: start: 20171023, end: 20171023
  2. TYLENOL [Concomitant]
     Active Substance: ACETAMINOPHEN
     Dosage: UNK, AS NEEDED

REACTIONS (5)
  - Rhinalgia [Recovering/Resolving]
  - Drug ineffective [Recovered/Resolved]
  - Nasal congestion [Not Recovered/Not Resolved]
  - Nasal discomfort [Recovering/Resolving]
  - Application site burn [Recovering/Resolving]

NARRATIVE: CASE EVENT DATE: 20171023
